FAERS Safety Report 16661209 (Version 3)
Quarter: 2020Q1

REPORT INFORMATION
  Report Type: Report from Study
  Country: KR (occurrence: KR)
  Receive Date: 20190802
  Receipt Date: 20200317
  Transmission Date: 20200409
  Serious: Yes (Death)
  Sender: FDA-Public Use
  Company Number: KR-PFIZER INC-2019330511

PATIENT

DRUGS (6)
  1. TOPOTECAN HCL [Suspect]
     Active Substance: TOPOTECAN HYDROCHLORIDE
     Indication: BRAIN NEOPLASM
     Dosage: 2 MG/M2/DAY, CYCLIC
  2. MELPHALAN. [Suspect]
     Active Substance: MELPHALAN
     Dosage: 70 MG/M2/DAY, CYCLIC DAY 6
  3. ETOPOSIDE. [Suspect]
     Active Substance: ETOPOSIDE
     Indication: BRAIN NEOPLASM
     Dosage: 200 MG/M2/DAY, CYCLIC
  4. CARBOPLATIN. [Suspect]
     Active Substance: CARBOPLATIN
     Indication: BRAIN NEOPLASM
     Dosage: 350 MG/M2/DAY, CYCLIC
  5. THIOTEPA. [Suspect]
     Active Substance: THIOTEPA
     Indication: BRAIN NEOPLASM
     Dosage: 300 MG/M2/DAY, CYCLIC
  6. MELPHALAN. [Suspect]
     Active Substance: MELPHALAN
     Indication: BRAIN NEOPLASM
     Dosage: 140 MG/M2/DAY, CYCLIC DAY7

REACTIONS (3)
  - Multiple organ dysfunction syndrome [Fatal]
  - Acute respiratory distress syndrome [Fatal]
  - Venoocclusive liver disease [Fatal]
